FAERS Safety Report 4867340-3 (Version None)
Quarter: 2005Q4

REPORT INFORMATION
  Report Type: 
  Country: None (occurrence: None)
  Receive Date: 20051228
  Receipt Date: 20051220
  Transmission Date: 20060501
  Serious: Yes (Other)
  Sender: FDA-Public Use
  Company Number: JP-AVENTIS-200513882JP

PATIENT
  Sex: Male

DRUGS (1)
  1. RILUTEK [Suspect]

REACTIONS (1)
  - CONGESTIVE CARDIOMYOPATHY [None]
